FAERS Safety Report 22906992 (Version 4)
Quarter: 2023Q4

REPORT INFORMATION
  Report Type: Report from Study
  Country: US (occurrence: US)
  Receive Date: 20230905
  Receipt Date: 20231211
  Transmission Date: 20240110
  Serious: Yes (Other)
  Sender: FDA-Public Use
  Company Number: US-ABBVIE-5392809

PATIENT
  Age: 80 Year
  Sex: Male
  Weight: 74 kg

DRUGS (5)
  1. IMBRUVICA [Suspect]
     Active Substance: IBRUTINIB
     Indication: Waldenstrom^s macroglobulinaemia
     Dosage: FORM STRENGTH: 140 MG
     Route: 048
     Dates: start: 20140901
  2. IMBRUVICA [Suspect]
     Active Substance: IBRUTINIB
     Indication: Waldenstrom^s macroglobulinaemia
     Dosage: FORM STRENGTH: 140 MILLIGRAM
     Route: 048
  3. IMBRUVICA [Suspect]
     Active Substance: IBRUTINIB
     Indication: Waldenstrom^s macroglobulinaemia
     Dosage: FORM STRENGTH: 140MG
     Route: 048
  4. PROPRANOLOL [Concomitant]
     Active Substance: PROPRANOLOL HYDROCHLORIDE
     Indication: Waldenstrom^s macroglobulinaemia
  5. SERTRALINE HYDROCHLORIDE [Concomitant]
     Active Substance: SERTRALINE HYDROCHLORIDE
     Indication: Waldenstrom^s macroglobulinaemia

REACTIONS (8)
  - Cardiac disorder [Recovering/Resolving]
  - Neoplasm malignant [Unknown]
  - Dementia [Not Recovered/Not Resolved]
  - Cerebrovascular accident [Recovering/Resolving]
  - Tremor [Not Recovered/Not Resolved]
  - Feeding disorder [Unknown]
  - Balance disorder [Unknown]
  - Asthenia [Unknown]

NARRATIVE: CASE EVENT DATE: 20190101
